FAERS Safety Report 7917450-9 (Version None)
Quarter: 2011Q4

REPORT INFORMATION
  Report Type: 
  Country: None (occurrence: None)
  Receive Date: 20111116
  Receipt Date: 20111111
  Transmission Date: 20120403
  Serious: Yes (Death, Hospitalization, Other)
  Sender: FDA-Public Use
  Company Number: US-ELI_LILLY_AND_COMPANY-US201111003785

PATIENT
  Sex: Male

DRUGS (3)
  1. GEMCITABINE HYDROCHLORIDE [Suspect]
     Dosage: 750 MG/KG, DAY 1,8,15, 28 DAY CYCLE
     Route: 042
     Dates: start: 20110415
  2. TARCEVA [Suspect]
     Dosage: 75 MG, UNK
     Route: 048
     Dates: start: 20110415, end: 20110513
  3. OTHER PHARMA COMPANY INV DRUG [Suspect]
     Dosage: 150 MG, CYCLE 28 DAYS
     Route: 048
     Dates: start: 20110415, end: 20110513

REACTIONS (5)
  - BLOOD ALKALINE PHOSPHATASE INCREASED [None]
  - HYPONATRAEMIA [None]
  - SMALL INTESTINAL OBSTRUCTION [None]
  - EMBOLISM [None]
  - NEOPLASM [None]
